FAERS Safety Report 7676811-6 (Version None)
Quarter: 2011Q3

REPORT INFORMATION
  Report Type: 
  Country: None (occurrence: None)
  Receive Date: 20110811
  Receipt Date: 20110804
  Transmission Date: 20111222
  Serious: Yes (Hospitalization)
  Sender: FDA-Public Use
  Company Number: DE-SANOFI-AVENTIS-2011SA043621

PATIENT
  Age: 60 Year
  Sex: Female
  Weight: 93 kg

DRUGS (4)
  1. CYCLOPHOSPHAMIDE [Suspect]
     Route: 041
  2. DOCETAXEL [Suspect]
     Indication: BREAST CANCER
     Route: 041
  3. DOCETAXEL [Suspect]
     Route: 041
     Dates: start: 20110705, end: 20110705
  4. CYCLOPHOSPHAMIDE [Suspect]
     Indication: BREAST CANCER
     Route: 041
     Dates: start: 20110705, end: 20110705

REACTIONS (5)
  - VENTRICULAR TACHYCARDIA [None]
  - VOMITING [None]
  - CARDIOMYOPATHY [None]
  - CARDIOVASCULAR DISORDER [None]
  - NAUSEA [None]
